FAERS Safety Report 13748872 (Version 1)
Quarter: 2017Q3

REPORT INFORMATION
  Report Type: Spontaneous
  Country: US (occurrence: US)
  Receive Date: 20170712
  Receipt Date: 20170712
  Transmission Date: 20171127
  Serious: Yes (Hospitalization)
  Sender: FDA-Public Use
  Company Number: None

PATIENT
  Age: 50 Year
  Sex: Female
  Weight: 74 kg

DRUGS (1)
  1. HEPARIN LOCK FLUSH SOLUTION 500UNITS/5ML [Suspect]
     Active Substance: HEPARIN SODIUM
     Indication: IRRIGATION THERAPY
     Dosage: OTHER DOSE:UGM;OTHER FREQUENCY:ONCE;?
     Route: 040
     Dates: start: 20170711, end: 20170711

REACTIONS (6)
  - Chest pain [None]
  - Throat tightness [None]
  - Heart rate increased [None]
  - Rash [None]
  - Blood pressure decreased [None]
  - Paraesthesia [None]

NARRATIVE: CASE EVENT DATE: 20170711
